FAERS Safety Report 6145378-6 (Version None)
Quarter: 2009Q2

REPORT INFORMATION
  Report Type: 
  Country: None (occurrence: None)
  Receive Date: 20090402
  Receipt Date: 20090320
  Transmission Date: 20091009
  Serious: Yes (Other)
  Sender: FDA-Public Use
  Company Number: 1022556-2009-00021

PATIENT
  Sex: Male

DRUGS (1)
  1. ICY HOT PM LOTION 4 OZ [Suspect]
     Indication: ANALGESIC THERAPY
     Dosage: 1 X, TOPICAL
     Route: 061
     Dates: start: 20090319

REACTIONS (1)
  - DERMATITIS CONTACT [None]
